FAERS Safety Report 8136706-0 (Version None)
Quarter: 2012Q1

REPORT INFORMATION
  Report Type: 
  Country: None (occurrence: None)
  Receive Date: 20120214
  Receipt Date: 20120203
  Transmission Date: 20120608
  Serious: Yes (Life-Threatening, Other)
  Sender: FDA-Public Use
  Company Number: US-PERRIGO-12US000941

PATIENT
  Age: 87 Year
  Sex: Female

DRUGS (7)
  1. BUPIVACAINE HCL [Suspect]
     Indication: ANAESTHESIA
     Dosage: UNK
     Route: 065
     Dates: start: 20080101, end: 20080101
  2. AMOXICILLIN [Suspect]
     Indication: PRODUCT USED FOR UNKNOWN INDICATION
     Dosage: UNK
     Route: 065
     Dates: start: 20080101, end: 20080101
  3. FENTANYL-100 [Suspect]
     Indication: ANAESTHESIA
     Dosage: UNK
     Route: 065
     Dates: start: 20080101, end: 20080101
  4. CEFAZOLIN [Suspect]
     Indication: PRODUCT USED FOR UNKNOWN INDICATION
     Dosage: UNK
     Route: 065
     Dates: start: 20080101, end: 20080101
  5. MIDAZOLAM HCL [Suspect]
     Indication: ANAESTHESIA
     Dosage: UNK
     Route: 065
     Dates: start: 20080101, end: 20080101
  6. KETAMINE HYDROCHLORIDE [Suspect]
     Indication: ANAESTHESIA
     Dosage: UNK
     Route: 065
     Dates: start: 20080101, end: 20080101
  7. ESMOLOL HCL [Suspect]
     Indication: PRODUCT USED FOR UNKNOWN INDICATION
     Dosage: UNK
     Route: 065
     Dates: start: 20080101, end: 20080101

REACTIONS (5)
  - URTICARIA [None]
  - TRYPTASE INCREASED [None]
  - ANAPHYLACTIC REACTION [None]
  - ANGIOEDEMA [None]
  - BLOOD PRESSURE DECREASED [None]
